FAERS Safety Report 24293825 (Version 1)
Quarter: 2024Q3

REPORT INFORMATION
  Report Type: Spontaneous
  Country: US (occurrence: None)
  Receive Date: 20240906
  Receipt Date: 20240906
  Transmission Date: 20241017
  Serious: No
  Sender: DOMPE FARMACEUTICI
  Company Number: US-FARMAPROD-202403-0682

PATIENT
  Age: 81 Year
  Sex: Male

DRUGS (29)
  1. OXERVATE [Suspect]
     Active Substance: CENEGERMIN-BKBJ
     Indication: Neurotrophic keratopathy
     Route: 047
     Dates: start: 20240219
  2. OXERVATE [Suspect]
     Active Substance: CENEGERMIN-BKBJ
  3. MORPHINE SULFATE [Concomitant]
     Active Substance: MORPHINE SULFATE
     Dosage: SYRINGE
  4. LORAZEPAM [Concomitant]
     Active Substance: LORAZEPAM
     Dosage: VIAL
  5. HALOPERIDOL [Concomitant]
     Active Substance: HALOPERIDOL
  6. KETAMINE HYDROCHLORIDE [Concomitant]
     Active Substance: KETAMINE HYDROCHLORIDE
     Dosage: VIAL
  7. ASPIRIN [Concomitant]
     Active Substance: ASPIRIN
  8. KRILL OIL [Concomitant]
     Active Substance: DIETARY SUPPLEMENT\KRILL OIL
  9. TEA LEAF [Concomitant]
     Active Substance: TEA LEAF
  10. VITAMINS [Concomitant]
     Active Substance: VITAMINS
  11. DILTIAZEM [Concomitant]
     Active Substance: DILTIAZEM
     Dosage: EXTENDED RELEWASE, 24 HOURS.
  12. AMITRIPTYLINE HYDROCHLORIDE [Concomitant]
     Active Substance: AMITRIPTYLINE HYDROCHLORIDE
  13. ALLOPURINOL [Concomitant]
     Active Substance: ALLOPURINOL
  14. BENZOYL PEROXIDE\CLINDAMYCIN PHOSPHATE [Concomitant]
     Active Substance: BENZOYL PEROXIDE\CLINDAMYCIN PHOSPHATE
  15. DULOXETINE HYDROCHLORIDE [Concomitant]
     Active Substance: DULOXETINE HYDROCHLORIDE
  16. ELIQUIS [Concomitant]
     Active Substance: APIXABAN
  17. FUROSEMIDE [Concomitant]
     Active Substance: FUROSEMIDE
  18. UNSPECIFIED INGREDIENT [Concomitant]
     Active Substance: UNSPECIFIED INGREDIENT
  19. METOPROLOL SUCCINATE [Concomitant]
     Active Substance: METOPROLOL SUCCINATE
  20. VITAMIN D-400 [Concomitant]
  21. VITAMIN B12 [Concomitant]
     Active Substance: CYANOCOBALAMIN
  22. VITAMIN C [Concomitant]
     Active Substance: ASCORBIC ACID
  23. COLLAGENASE [Concomitant]
     Active Substance: COLLAGENASE CLOSTRIDIUM HISTOLYTICUM
  24. IRONUP [Concomitant]
     Dosage: 15MG/0.5ML
  25. ONDANSETRON HYDROCHLORIDE [Concomitant]
     Active Substance: ONDANSETRON HYDROCHLORIDE
  26. PREDNISOLONE-BROMFENAC [Concomitant]
  27. CYCLOSPORINE [Concomitant]
     Active Substance: CYCLOSPORINE
  28. LATANOPROST [Concomitant]
     Active Substance: LATANOPROST
  29. OMEPRAZOLE [Concomitant]
     Active Substance: OMEPRAZOLE

REACTIONS (1)
  - Product dose omission issue [Unknown]

NARRATIVE: CASE EVENT DATE: 20240201
